FAERS Safety Report 21119740 (Version 1)
Quarter: 2022Q3

REPORT INFORMATION
  Report Type: Spontaneous
  Country: US (occurrence: None)
  Receive Date: 20220721
  Receipt Date: 20220721
  Transmission Date: 20221026
  Serious: Yes (Life-Threatening, Other)
  Sender: FDA-Public Use
  Company Number: None

PATIENT
  Age: 28 Year
  Sex: Female
  Weight: 66.6 kg

DRUGS (7)
  1. NITROFURANTOIN [Suspect]
     Active Substance: NITROFURANTOIN
     Indication: Urinary tract infection
     Dates: start: 20220424, end: 20220425
  2. WELLBUTRIN [Concomitant]
     Active Substance: BUPROPION HYDROCHLORIDE
  3. BUSPAR [Concomitant]
     Active Substance: BUSPIRONE HYDROCHLORIDE
  4. HYDROXYZINE HYDROCHLORIDE [Concomitant]
     Active Substance: HYDROXYZINE HYDROCHLORIDE
  5. Womens daily vitamin [Concomitant]
  6. PEPCID [Concomitant]
     Active Substance: FAMOTIDINE
  7. Pre and probiotic [Concomitant]

REACTIONS (8)
  - Vomiting [None]
  - Nausea [None]
  - Fatigue [None]
  - Pain [None]
  - Pyrexia [None]
  - Jaundice [None]
  - Hypersensitivity [None]
  - Hepatotoxicity [None]

NARRATIVE: CASE EVENT DATE: 20220424
